FAERS Safety Report 16176026 (Version 3)
Quarter: 2019Q2

REPORT INFORMATION
  Report Type: Spontaneous
  Country: DE (occurrence: DE)
  Receive Date: 20190409
  Receipt Date: 20190429
  Transmission Date: 20190711
  Serious: Yes (Life-Threatening, Hospitalization)
  Sender: FDA-Public Use
  Company Number: DE-JNJFOC-20190408796

PATIENT
  Age: 67 Year
  Sex: Male
  Weight: 60 kg

DRUGS (1)
  1. STELARA [Suspect]
     Active Substance: USTEKINUMAB
     Indication: CROHN^S DISEASE
     Route: 042
     Dates: start: 20190221

REACTIONS (15)
  - Dehydration [Unknown]
  - Somnolence [Unknown]
  - Hypokalaemia [Unknown]
  - Urticaria [Recovered/Resolved]
  - Pulmonary sepsis [Not Recovered/Not Resolved]
  - Contusion [Unknown]
  - Anaemia of chronic disease [Unknown]
  - Wound infection bacterial [Unknown]
  - Pneumococcal sepsis [Recovering/Resolving]
  - Hypoalbuminaemia [Unknown]
  - Crohn^s disease [Recovered/Resolved]
  - Cachexia [Unknown]
  - Syncope [Recovering/Resolving]
  - Fall [Unknown]
  - Hyponatraemia [Recovered/Resolved]

NARRATIVE: CASE EVENT DATE: 2019
